FAERS Safety Report 6081713-5 (Version None)
Quarter: 2009Q1

REPORT INFORMATION
  Report Type: 
  Country: None (occurrence: None)
  Receive Date: 20090129
  Receipt Date: 20070412
  Transmission Date: 20090719
  Serious: No
  Sender: FDA-Public Use
  Company Number: EUR 188

PATIENT
  Age: 73 Year
  Sex: Female

DRUGS (2)
  1. POTASSIUM CHLORIDE 20MEQ [Suspect]
     Indication: DIURETIC THERAPY
     Dosage: 20 MEQ, 2 QD, PO
     Route: 048
     Dates: start: 20070110
  2. POTASSIUM CHLORIDE 20MEQ [Suspect]
     Indication: ELECTROLYTE SUBSTITUTION THERAPY
     Dosage: 20 MEQ, 2 QD, PO
     Route: 048
     Dates: start: 20070110

REACTIONS (1)
  - MUSCLE SPASMS [None]
